FAERS Safety Report 12678927 (Version 1)
Quarter: 2016Q3

REPORT INFORMATION
  Report Type: Spontaneous
  Country: IT (occurrence: IT)
  Receive Date: 20160824
  Receipt Date: 20160824
  Transmission Date: 20161109
  Serious: Yes (Other)
  Sender: FDA-Public Use
  Company Number: IT-ROCHE-1818808

PATIENT
  Age: 53 Year
  Sex: Female
  Weight: 56 kg

DRUGS (3)
  1. ARAVA [Concomitant]
     Active Substance: LEFLUNOMIDE
     Dosage: 20 MG FILM-COATED TABLETS, BLISTER PACK, 30 TABLET
     Route: 048
     Dates: start: 20160501, end: 20160808
  2. MEDROL [Concomitant]
     Active Substance: METHYLPREDNISOLONE
     Dosage: ^4 MG TABLETS^ 30 TABLETS
     Route: 048
     Dates: start: 20140101, end: 20160808
  3. ROACTEMRA [Suspect]
     Active Substance: TOCILIZUMAB
     Indication: RHEUMATOID ARTHRITIS
     Dosage: ^20 MG/ML VIAL (GLASS) 20 ML^ 1 VIAL
     Route: 042
     Dates: start: 20160804, end: 20160808

REACTIONS (3)
  - Palatal oedema [Recovered/Resolved]
  - Hypersensitivity [Recovered/Resolved]
  - Asthma [Recovered/Resolved]

NARRATIVE: CASE EVENT DATE: 20160808
